FAERS Safety Report 23735214 (Version 1)
Quarter: 2024Q2

REPORT INFORMATION
  Report Type: Spontaneous
  Country: GB (occurrence: GB)
  Receive Date: 20240412
  Receipt Date: 20240412
  Transmission Date: 20240716
  Serious: Yes (Death)
  Sender: FDA-Public Use
  Company Number: GB-ASTELLAS-2024US009108

PATIENT
  Age: 65 Year
  Sex: Female

DRUGS (1)
  1. XOSPATA [Suspect]
     Active Substance: GILTERITINIB
     Indication: Acute myeloid leukaemia recurrent
     Route: 065
     Dates: start: 20240111, end: 20240320

REACTIONS (3)
  - Full blood count increased [Fatal]
  - Drug ineffective [Fatal]
  - Overdose [Unknown]

NARRATIVE: CASE EVENT DATE: 20240111
